FAERS Safety Report 6742222-0 (Version None)
Quarter: 2010Q2

REPORT INFORMATION
  Report Type: 
  Country: None (occurrence: None)
  Receive Date: 20100524
  Receipt Date: 20100517
  Transmission Date: 20101027
  Serious: Yes (Other)
  Sender: FDA-Public Use
  Company Number: 012030

PATIENT
  Sex: Female
  Weight: 2.5 kg

DRUGS (3)
  1. KEPPRA [Suspect]
     Indication: EPILEPSY
     Dosage: 1 G TID TRANSPLACENTAL
     Route: 064
  2. TEGRETOL [Suspect]
     Indication: EPILEPSY
     Dosage: 400 MG BID TRANSPLACENTAL
     Route: 064
  3. FOLIC ACID [Concomitant]

REACTIONS (4)
  - FOETAL GROWTH RETARDATION [None]
  - HEAD CIRCUMFERENCE ABNORMAL [None]
  - MATERNAL DRUGS AFFECTING FOETUS [None]
  - SMALL FOR DATES BABY [None]
